FAERS Safety Report 7898876-9 (Version None)
Quarter: 2011Q4

REPORT INFORMATION
  Report Type: 
  Country: None (occurrence: None)
  Receive Date: 20111107
  Receipt Date: 20111102
  Transmission Date: 20120403
  Serious: Yes (Other)
  Sender: FDA-Public Use
  Company Number: US-PFIZER INC-2011269482

PATIENT
  Age: 57 Year
  Sex: Female

DRUGS (11)
  1. KLOR-CON [Suspect]
     Dosage: UNK
  2. LIPITOR [Suspect]
     Dosage: 40 MG, UNK
  3. BYSTOLIC [Suspect]
     Dosage: UNK
  4. LASIX [Suspect]
     Dosage: UNK
  5. NEXIUM [Suspect]
     Dosage: UNK
  6. VIVELLE [Suspect]
     Dosage: UNK
  7. PAXIL [Suspect]
     Dosage: UNK
  8. FLEXERIL [Suspect]
     Dosage: UNK
  9. XANAX [Suspect]
     Dosage: UNK
  10. IMDUR [Suspect]
     Dosage: UNK
  11. ACTONEL [Suspect]
     Dosage: UNK

REACTIONS (1)
  - CONFUSIONAL STATE [None]
